FAERS Safety Report 4708907-2 (Version None)
Quarter: 2005Q3

REPORT INFORMATION
  Report Type: 
  Country: None (occurrence: None)
  Receive Date: 20050705
  Receipt Date: 20050627
  Transmission Date: 20060218
  Serious: Yes (Death, Other)
  Sender: FDA-Public Use
  Company Number: 200511233GDS

PATIENT
  Age: 75 Year
  Sex: Male
  Weight: 68 kg

DRUGS (5)
  1. AVELOX [Suspect]
     Indication: RESPIRATORY TRACT INFECTION
     Dosage: 400 MG, TOTAL DAILY; INTRAVENOUS
     Route: 042
  2. AMIODARONE HYDROCHLORIDE [Concomitant]
  3. PROPOFOL [Concomitant]
  4. IMIPENEM [Concomitant]
  5. LOW MOLECULAR WEIGHT HEPARIN [Concomitant]

REACTIONS (20)
  - AGITATION [None]
  - ANURIA [None]
  - BRONCHOSPASM [None]
  - CHRONIC OBSTRUCTIVE PULMONARY DISEASE [None]
  - COAGULOPATHY [None]
  - DISSEMINATED INTRAVASCULAR COAGULATION [None]
  - DRUG HYPERSENSITIVITY [None]
  - HAEMODIALYSIS [None]
  - HALLUCINATION [None]
  - HEPATIC FAILURE [None]
  - HEPATIC NECROSIS [None]
  - HEPATITIS [None]
  - HEPATOCELLULAR DAMAGE [None]
  - HYPOTENSION [None]
  - MULTI-ORGAN FAILURE [None]
  - PULMONARY TOXICITY [None]
  - RENAL FAILURE [None]
  - RHABDOMYOLYSIS [None]
  - SEPSIS [None]
  - THROMBOCYTOPENIA [None]
